FAERS Safety Report 23915774 (Version 1)
Quarter: 2024Q2

REPORT INFORMATION
  Report Type: Spontaneous
  Country: CN (occurrence: CN)
  Receive Date: 20240529
  Receipt Date: 20240529
  Transmission Date: 20240716
  Serious: Yes (Other)
  Sender: FDA-Public Use
  Company Number: CN-009507513-2405CHN007440

PATIENT
  Age: 35 Year
  Sex: Female

DRUGS (5)
  1. CILASTATIN SODIUM\IMIPENEM [Suspect]
     Active Substance: CILASTATIN SODIUM\IMIPENEM
     Indication: Urinary tract infection
     Dosage: 0.5 GRAM, BID
     Route: 041
     Dates: start: 20240411, end: 20240412
  2. MEROPENEM [Suspect]
     Active Substance: MEROPENEM
     Indication: Urinary tract infection
     Dosage: 0.25 GRAM, BID
     Route: 041
     Dates: start: 20240412, end: 20240415
  3. SODIUM CHLORIDE [Concomitant]
     Active Substance: SODIUM CHLORIDE
     Indication: Medication dilution
     Dosage: 100ML, BID
     Route: 041
     Dates: start: 20240411, end: 20240412
  4. SODIUM CHLORIDE [Concomitant]
     Active Substance: SODIUM CHLORIDE
     Dosage: 50ML, BID
     Route: 041
     Dates: start: 20240412, end: 20240415
  5. CEFOPERAZONE SODIUM\SULBACTAM SODIUM [Concomitant]
     Active Substance: CEFOPERAZONE SODIUM\SULBACTAM SODIUM
     Indication: Urinary tract infection
     Dosage: UNK
     Dates: start: 202404, end: 20240411

REACTIONS (2)
  - Epilepsy [Recovered/Resolved]
  - Epilepsy [Recovered/Resolved]

NARRATIVE: CASE EVENT DATE: 20240412
